FAERS Safety Report 6165144-5 (Version None)
Quarter: 2009Q2

REPORT INFORMATION
  Report Type: 
  Country: None (occurrence: None)
  Receive Date: 20090421
  Receipt Date: 20090421
  Transmission Date: 20091009
  Serious: Yes (Other)
  Sender: FDA-Public Use
  Company Number: None

PATIENT
  Age: 21 Year
  Sex: Male
  Weight: 70.3075 kg

DRUGS (3)
  1. DILAUDID [Suspect]
     Indication: TIBIA FRACTURE
     Dosage: 2MG AS NEEDED PO
     Route: 048
     Dates: start: 20080503, end: 20080506
  2. DILAUDID [Suspect]
     Indication: UPPER LIMB FRACTURE
     Dosage: 2MG AS NEEDED PO
     Route: 048
     Dates: start: 20080503, end: 20080506
  3. DILAUDID [Suspect]
     Indication: WRIST FRACTURE
     Dosage: 2MG AS NEEDED PO
     Route: 048
     Dates: start: 20080503, end: 20080506

REACTIONS (2)
  - SUICIDAL IDEATION [None]
  - THINKING ABNORMAL [None]
